FAERS Safety Report 24791224 (Version 1)
Quarter: 2024Q4

REPORT INFORMATION
  Report Type: Spontaneous
  Country: US (occurrence: US)
  Receive Date: 20241230
  Receipt Date: 20241230
  Transmission Date: 20250114
  Serious: Yes (Other)
  Sender: NOVO NORDISK
  Company Number: US-NOVOPROD-1339880

PATIENT
  Sex: Female
  Weight: 108.84 kg

DRUGS (3)
  1. OZEMPIC [Suspect]
     Active Substance: SEMAGLUTIDE
     Indication: Overweight
     Dosage: UNK
     Route: 058
  2. OZEMPIC [Suspect]
     Active Substance: SEMAGLUTIDE
     Indication: Snoring
  3. OZEMPIC [Suspect]
     Active Substance: SEMAGLUTIDE
     Indication: General physical health deterioration

REACTIONS (3)
  - Premature menopause [Unknown]
  - Weight loss poor [Unknown]
  - Product use in unapproved indication [Unknown]
